FAERS Safety Report 25048927 (Version 1)
Quarter: 2025Q1

REPORT INFORMATION
  Report Type: Spontaneous
  Country: KR (occurrence: KR)
  Receive Date: 20250307
  Receipt Date: 20250307
  Transmission Date: 20250409
  Serious: Yes (Other)
  Sender: ABBVIE
  Company Number: KR-ABBVIE-6158102

PATIENT
  Age: 68 Year
  Sex: Female

DRUGS (4)
  1. HUMIRA [Suspect]
     Active Substance: ADALIMUMAB
     Indication: Prurigo
     Route: 058
     Dates: start: 20220729, end: 20220729
  2. HUMIRA [Suspect]
     Active Substance: ADALIMUMAB
     Indication: Oedema
  3. HUMIRA [Suspect]
     Active Substance: ADALIMUMAB
     Indication: Rash
  4. HUMIRA [Suspect]
     Active Substance: ADALIMUMAB
     Indication: Urticaria

REACTIONS (5)
  - Oedema [Recovered/Resolved]
  - Rash [Recovered/Resolved]
  - Prurigo [Recovered/Resolved]
  - Urticaria [Recovered/Resolved]
  - Product use in unapproved indication [Unknown]

NARRATIVE: CASE EVENT DATE: 20220812
